FAERS Safety Report 22047720 (Version 1)
Quarter: 2023Q1

REPORT INFORMATION
  Report Type: Report from Study
  Country: ZA (occurrence: ZA)
  Receive Date: 20230301
  Receipt Date: 20230301
  Transmission Date: 20230417
  Serious: Yes (Other)
  Sender: FDA-Public Use
  Company Number: ZA-ABBVIE-4322035

PATIENT
  Age: 7 Year
  Sex: Female

DRUGS (1)
  1. HUMIRA [Suspect]
     Active Substance: ADALIMUMAB
     Indication: Central nervous system vasculitis
     Route: 058
     Dates: start: 20230209

REACTIONS (3)
  - Cerebrovascular accident [Unknown]
  - Central nervous system vasculitis [Unknown]
  - Off label use [Unknown]

NARRATIVE: CASE EVENT DATE: 20230225
